FAERS Safety Report 21104091 (Version 1)
Quarter: 2022Q3

REPORT INFORMATION
  Report Type: Spontaneous
  Country: US (occurrence: US)
  Receive Date: 20220720
  Receipt Date: 20220720
  Transmission Date: 20221027
  Serious: Yes (Hospitalization)
  Sender: FDA-Public Use
  Company Number: US-LUPIN PHARMACEUTICALS INC.-2022-09608

PATIENT
  Age: 60 Year
  Sex: Female

DRUGS (12)
  1. FLUCYTOSINE [Suspect]
     Active Substance: FLUCYTOSINE
     Indication: Candida infection
     Dosage: 1250 MG, QD (21MG/KG FROM DAY 155 POST IHD)
     Route: 048
  2. FLUCYTOSINE [Suspect]
     Active Substance: FLUCYTOSINE
     Dosage: 1000 MG, QD (17 MG/KG FROM DAY 189 POST IHD)
     Route: 048
  3. FLUCYTOSINE [Suspect]
     Active Substance: FLUCYTOSINE
     Dosage: UNK (1250 MG POST-IHD (21 MG/KG) ON IHD DAYS AND 1000 MG (17 MG/KG) IN THE EVENINGS ON ALL OTHER DAY
     Route: 048
  4. FLUCYTOSINE [Suspect]
     Active Substance: FLUCYTOSINE
     Dosage: 1250 MG (EVERY OTHER DAY)
     Route: 048
  5. FLUCYTOSINE [Suspect]
     Active Substance: FLUCYTOSINE
     Dosage: 1500 MG (25 MG/KG; INITIAL DOSE)
     Route: 048
  6. MYCOPHENOLIC ACID [Concomitant]
     Active Substance: MYCOPHENOLIC ACID
     Indication: Immunosuppressant drug therapy
     Dosage: UNK
     Route: 065
  7. AZATHIOPRINE [Concomitant]
     Active Substance: AZATHIOPRINE
     Indication: Immunosuppressant drug therapy
     Dosage: UNK
     Route: 065
  8. MICAFUNGIN [Concomitant]
     Active Substance: MICAFUNGIN
     Indication: Antifungal prophylaxis
     Dosage: 100 MG, QD
     Route: 042
  9. MICAFUNGIN [Concomitant]
     Active Substance: MICAFUNGIN
     Indication: Candida infection
  10. FLUCONAZOLE [Concomitant]
     Active Substance: FLUCONAZOLE
     Indication: Candida infection
     Dosage: 200 MG, QD
     Route: 048
  11. FLUCONAZOLE [Concomitant]
     Active Substance: FLUCONAZOLE
     Dosage: 300 MG, QD
     Route: 048
  12. AMPHOTERICIN B [Concomitant]
     Active Substance: AMPHOTERICIN B
     Indication: Candida infection
     Dosage: UNK
     Route: 065

REACTIONS (1)
  - Colitis [Unknown]
